FAERS Safety Report 16056305 (Version 1)
Quarter: 2019Q1

REPORT INFORMATION
  Report Type: Spontaneous
  Country: US (occurrence: US)
  Receive Date: 20190311
  Receipt Date: 20190311
  Transmission Date: 20190418
  Serious: No
  Sender: FDA-Public Use
  Company Number: US-GLENMARK PHARMACEUTICALS-2019GMK039423

PATIENT

DRUGS (6)
  1. ANDROGEL [Concomitant]
     Active Substance: TESTOSTERONE
     Indication: BLOOD TESTOSTERONE ABNORMAL
     Dosage: UNK
     Route: 065
  2. MUPIROCIN OINTMENT USP, 2% [Suspect]
     Active Substance: MUPIROCIN
     Indication: SINUSITIS
     Dosage: UNK, OD
     Route: 045
     Dates: start: 20190112
  3. ROSUVASTATIN. [Concomitant]
     Active Substance: ROSUVASTATIN
     Indication: BLOOD CHOLESTEROL ABNORMAL
     Dosage: UNK (EVERY OTHER DAY)
     Route: 065
  4. FLUTICASONE PROPIONATE. [Concomitant]
     Active Substance: FLUTICASONE PROPIONATE
     Indication: SINUSITIS
     Dosage: UNK, OD
     Route: 065
  5. AFRIN [Concomitant]
     Active Substance: OXYMETAZOLINE
     Indication: SINUSITIS
     Dosage: 2 DF, OD (2 SPRAYS, ONCE A DAY)
     Route: 065
  6. METFORMIN [Concomitant]
     Active Substance: METFORMIN HYDROCHLORIDE
     Indication: BLOOD GLUCOSE INCREASED
     Dosage: 2000 MG, QD
     Route: 065

REACTIONS (3)
  - Incorrect route of product administration [Unknown]
  - Product use in unapproved indication [Unknown]
  - No adverse event [Unknown]
